FAERS Safety Report 5126310-0 (Version None)
Quarter: 2006Q3

REPORT INFORMATION
  Report Type: 
  Country: None (occurrence: None)
  Receive Date: 20060825
  Receipt Date: 20060712
  Transmission Date: 20061208
  Serious: Yes (Death)
  Sender: FDA-Public Use
  Company Number: 06P-163-0325028-00

PATIENT
  Age: 71 Year
  Sex: Male
  Weight: 68.0396 kg

DRUGS (8)
  1. SYNTHROID [Suspect]
     Indication: HYPOPITUITARISM
     Dosage: 75 MG, 1 IN 1 D, PER ORAL
     Route: 048
     Dates: start: 19970924, end: 20050819
  2. TRICOR [Suspect]
     Indication: BLOOD CHOLESTEROL INCREASED
     Dosage: 145 MG, 1 IN 1 D, PER ORAL
     Route: 048
     Dates: start: 20010829, end: 20050819
  3. ZOCOR [Concomitant]
  4. CILOSTAZOL [Concomitant]
  5. CARVEDILOL [Concomitant]
  6. FUROSEMIDE [Concomitant]
  7. COUMADIN [Concomitant]
  8. DILTIAZEM HYDROCHLORIDE [Concomitant]

REACTIONS (1)
  - DEATH [None]
